FAERS Safety Report 4865595-2 (Version None)
Quarter: 2005Q4

REPORT INFORMATION
  Report Type: 
  Country: None (occurrence: None)
  Receive Date: 20051220
  Receipt Date: 20051220
  Transmission Date: 20060501
  Serious: Yes (Hospitalization)
  Sender: FDA-Public Use
  Company Number: None

PATIENT
  Age: 79 Year
  Sex: Male
  Weight: 67.1 kg

DRUGS (13)
  1. DOCETAXEL [Suspect]
     Indication: NON-SMALL CELL LUNG CANCER
     Dosage: 75MG/M2 Q21 DAYS
     Dates: start: 20051209
  2. ATENOLOL [Concomitant]
  3. CEPHALEXIN [Concomitant]
  4. CILOSTAZOL [Concomitant]
  5. EPOGEN [Concomitant]
  6. HCTZ 50/ TRIAMTERENE [Concomitant]
  7. MEGESTROL ACETATE [Concomitant]
  8. ODANSETRON HCL [Concomitant]
  9. POTASSIUM CHLORIDE [Concomitant]
  10. SALSALATE [Concomitant]
  11. SENNOSIDE [Concomitant]
  12. SIMVASTATIN [Concomitant]
  13. TERAZOSIN HCL [Concomitant]

REACTIONS (5)
  - BLOOD UREA INCREASED [None]
  - DEHYDRATION [None]
  - DIARRHOEA [None]
  - DIZZINESS POSTURAL [None]
  - PANCYTOPENIA [None]
